FAERS Safety Report 8187925-9 (Version None)
Quarter: 2012Q1

REPORT INFORMATION
  Report Type: 
  Country: None (occurrence: None)
  Receive Date: 20120306
  Receipt Date: 20120227
  Transmission Date: 20120608
  Serious: Yes (Other)
  Sender: FDA-Public Use
  Company Number: JP-GLAXOSMITHKLINE-B0674025A

PATIENT
  Age: 66 Year
  Sex: Male
  Weight: 62 kg

DRUGS (8)
  1. ITRACONAZOLE [Concomitant]
     Route: 048
  2. CORTRIL [Concomitant]
     Dosage: 20MG PER DAY
     Route: 048
  3. BARACLUDE [Concomitant]
     Dosage: .5MG PER DAY
     Route: 048
  4. ZOVIRAX [Suspect]
     Dosage: 250MG PER DAY
     Route: 042
     Dates: start: 20100905
  5. RABEPRAZOLE SODIUM [Concomitant]
     Dosage: 10MG PER DAY
     Route: 048
  6. COTRIM [Concomitant]
     Dosage: 1IUAX PER DAY
     Route: 048
  7. ISONIAZID [Concomitant]
     Route: 048
  8. ZOVIRAX [Suspect]
     Indication: HERPES ZOSTER
     Dosage: 750MG PER DAY
     Route: 042
     Dates: start: 20100902, end: 20100904

REACTIONS (10)
  - HALLUCINATION [None]
  - DELIRIUM [None]
  - INSOMNIA [None]
  - PSYCHIATRIC SYMPTOM [None]
  - AGITATION [None]
  - ABNORMAL BEHAVIOUR [None]
  - LOGORRHOEA [None]
  - BLISTER [None]
  - SCAB [None]
  - ENCEPHALOPATHY [None]
